FAERS Safety Report 17533295 (Version 1)
Quarter: 2020Q1

REPORT INFORMATION
  Report Type: Report from Study
  Country: US (occurrence: US)
  Receive Date: 20200312
  Receipt Date: 20200312
  Transmission Date: 20200409
  Serious: Yes (Other)
  Sender: FDA-Public Use
  Company Number: US-PFIZER INC-2020032136

PATIENT
  Age: 52 Year
  Sex: Female

DRUGS (1)
  1. XELJANZ [Suspect]
     Active Substance: TOFACITINIB CITRATE
     Dosage: 5 MG, UNK
     Dates: start: 201912

REACTIONS (7)
  - Influenza [Not Recovered/Not Resolved]
  - Tongue biting [Unknown]
  - Seizure [Unknown]
  - Muscle spasms [Unknown]
  - Hypoaesthesia [Unknown]
  - Rash [Unknown]
  - Swelling [Unknown]
